FAERS Safety Report 10433736 (Version 5)
Quarter: 2014Q4

REPORT INFORMATION
  Report Type: Report from Study
  Country: BR (occurrence: BR)
  Receive Date: 20140905
  Receipt Date: 20141022
  Transmission Date: 20150528
  Serious: Yes (Other)
  Sender: FDA-Public Use
  Company Number: BR-SA-2014SA118102

PATIENT
  Age: 75 Year
  Sex: Female
  Weight: 95 kg

DRUGS (8)
  1. LANTUS [Suspect]
     Active Substance: INSULIN GLARGINE
     Indication: TYPE 2 DIABETES MELLITUS
     Dosage: DOSE:45 IU IN MORNING AND 30 IU AT NIGHT
     Route: 058
     Dates: start: 2002
  2. VICTOZA [Concomitant]
     Active Substance: LIRAGLUTIDE
     Indication: PSORIASIS
     Dates: start: 201212, end: 201307
  3. CLIKSTAR [Suspect]
     Active Substance: CLIKSTAR
     Indication: DEVICE THERAPY
     Dates: start: 2008, end: 201408
  4. ALL OTHER THERAPEUTIC PRODUCTS [Concomitant]
     Active Substance: UNSPECIFIED INGREDIENT
     Indication: GLAUCOMA
     Dosage: DISE: 1 DROP IN EACH EYE?ROUTE: OCULAR
  5. METFORMIN [Concomitant]
     Active Substance: METFORMIN HYDROCHLORIDE
     Indication: TYPE 2 DIABETES MELLITUS
     Route: 048
  6. AZOPT [Concomitant]
     Active Substance: BRINZOLAMIDE
     Indication: GLAUCOMA
     Dosage: ROUTE: OCULAR?DOSE: 1 DROP IN EACH EYE TWICE DAILY
  7. HUMALOG [Concomitant]
     Active Substance: INSULIN LISPRO
     Indication: TYPE 2 DIABETES MELLITUS
     Dosage: DOSE: IU^S ACCORDING TO GLYCEMIC INDEX
     Route: 058
     Dates: start: 2000
  8. XALATAN [Concomitant]
     Active Substance: LATANOPROST
     Indication: GLAUCOMA
     Dosage: ROUTE: OCULAR?DOSE: 1 DROP IN EACH EYE

REACTIONS (16)
  - Psoriasis [Not Recovered/Not Resolved]
  - Feeling hot [Not Recovered/Not Resolved]
  - Hyperhidrosis [Not Recovered/Not Resolved]
  - Hyperglycaemia [Not Recovered/Not Resolved]
  - Off label use [Unknown]
  - Tremor [Recovered/Resolved]
  - Balance disorder [Recovered/Resolved]
  - Feeling abnormal [Recovered/Resolved]
  - Hypoglycaemia [Recovered/Resolved]
  - Rash [Not Recovered/Not Resolved]
  - Parkinson^s disease [Recovering/Resolving]
  - Fall [Not Recovered/Not Resolved]
  - Swelling [Not Recovered/Not Resolved]
  - Blood glucose abnormal [Recovered/Resolved]
  - Purulent discharge [Recovered/Resolved]
  - Erythema [Recovered/Resolved]

NARRATIVE: CASE EVENT DATE: 2000
